FAERS Safety Report 5722276-0 (Version None)
Quarter: 2008Q2

REPORT INFORMATION
  Report Type: 
  Country: None (occurrence: None)
  Receive Date: 20080429
  Receipt Date: 20080418
  Transmission Date: 20081010
  Serious: Yes (Hospitalization, Other)
  Sender: FDA-Public Use
  Company Number: US-ELI_LILLY_AND_COMPANY-US200804005182

PATIENT
  Sex: Female

DRUGS (2)
  1. FORTEO [Suspect]
     Dates: start: 20070101
  2. LEVOTHYROXINE SODIUM [Concomitant]

REACTIONS (8)
  - CATARACT [None]
  - CONSTIPATION [None]
  - FLATULENCE [None]
  - GASTROINTESTINAL PAIN [None]
  - HIP FRACTURE [None]
  - MACULAR DEGENERATION [None]
  - RETINAL TEAR [None]
  - VISION BLURRED [None]
